FAERS Safety Report 6822528-7 (Version None)
Quarter: 2010Q3

REPORT INFORMATION
  Report Type: 
  Country: None (occurrence: None)
  Receive Date: 20100702
  Receipt Date: 20100622
  Transmission Date: 20110219
  Serious: Yes (Hospitalization, Other)
  Sender: FDA-Public Use
  Company Number: A-NJ2010-37282

PATIENT
  Age: 2 Year
  Sex: Female

DRUGS (4)
  1. TRACLEER [Suspect]
     Indication: PULMONARY ARTERIAL HYPERTENSION
     Dosage: 31.25 MG, BID, ORAL, 15.6 MG, BID, ORAL
     Route: 048
     Dates: start: 20090201, end: 20100401
  2. TRACLEER [Suspect]
     Indication: PULMONARY ARTERIAL HYPERTENSION
     Dosage: 31.25 MG, BID, ORAL, 15.6 MG, BID, ORAL
     Route: 048
     Dates: start: 20100401
  3. SILDENAFIL CITRATE [Concomitant]
  4. REMODULIN [Concomitant]

REACTIONS (4)
  - CHILLS [None]
  - HEART RATE INCREASED [None]
  - KLEBSIELLA BACTERAEMIA [None]
  - TREMOR [None]
